FAERS Safety Report 16484426 (Version 1)
Quarter: 2019Q2

REPORT INFORMATION
  Report Type: Spontaneous
  Country: GB (occurrence: GB)
  Receive Date: 20190627
  Receipt Date: 20190627
  Transmission Date: 20190711
  Serious: Yes (Life-Threatening, Hospitalization)
  Sender: FDA-Public Use
  Company Number: GB-MYLANLABS-2019M1059980

PATIENT
  Age: 79 Year
  Sex: Female
  Weight: 86 kg

DRUGS (2)
  1. ROCURONIUM [Suspect]
     Active Substance: ROCURONIUM BROMIDE
     Indication: ANAESTHESIA
     Dosage: 50 MILLIGRAM, 40MG +10MG
     Route: 042
     Dates: start: 20181102, end: 20181102
  2. CO-AMOXICLAV                       /00756801/ [Suspect]
     Active Substance: AMOXICILLIN\CLAVULANIC ACID
     Indication: ANTIBIOTIC PROPHYLAXIS
     Dosage: 1.2 GRAM
     Route: 042
     Dates: start: 20181102, end: 20181102

REACTIONS (3)
  - Anaphylactic reaction [Recovered/Resolved]
  - Cardiac arrest [Unknown]
  - Pulseless electrical activity [Unknown]

NARRATIVE: CASE EVENT DATE: 20181102
